FAERS Safety Report 20288866 (Version 1)
Quarter: 2022Q1

REPORT INFORMATION
  Report Type: Spontaneous
  Country: JP (occurrence: JP)
  Receive Date: 20220104
  Receipt Date: 20220104
  Transmission Date: 20220423
  Serious: Yes (Hospitalization, Other)
  Sender: FDA-Public Use
  Company Number: JP-SCIEGENP-2021SCLIT01059

PATIENT
  Age: 59 Year
  Sex: Male

DRUGS (4)
  1. CARBIDOPA AND LEVODOPA [Suspect]
     Active Substance: CARBIDOPA\LEVODOPA
     Indication: Parkinson^s disease
  2. CARBIDOPA AND LEVODOPA [Suspect]
     Active Substance: CARBIDOPA\LEVODOPA
  3. ROTIGOTINE [Concomitant]
     Active Substance: ROTIGOTINE
     Indication: Product used for unknown indication
     Route: 065
  4. IS-tradefylline [Concomitant]
     Indication: Product used for unknown indication

REACTIONS (2)
  - Nephrotic syndrome [Recovering/Resolving]
  - Encephalopathy [Recovering/Resolving]
